FAERS Safety Report 4887017-8 (Version None)
Quarter: 2006Q1

REPORT INFORMATION
  Report Type: 
  Country: None (occurrence: None)
  Receive Date: 20060118
  Receipt Date: 20060109
  Transmission Date: 20060701
  Serious: Yes (Other)
  Sender: FDA-Public Use
  Company Number: TPA2006A00046

PATIENT
  Age: 68 Year
  Sex: Female
  Weight: 58.9676 kg

DRUGS (7)
  1. ACTOS [Suspect]
     Indication: DIABETES MELLITUS NON-INSULIN-DEPENDENT
     Dosage: 45 MG, 1 IN 1 D,  PER ORAL
     Route: 048
     Dates: start: 20010101
  2. LIPITOR [Concomitant]
  3. LOPID [Concomitant]
  4. ACCUPRIL [Concomitant]
  5. DIGOXIN [Concomitant]
  6. VITAMIN A PALMITATE (RETINOL) [Concomitant]
  7. CALCIUM WITH VITAMIN D (VITACAL) [Concomitant]

REACTIONS (5)
  - BLINDNESS UNILATERAL [None]
  - CATARACT [None]
  - EYE SWELLING [None]
  - RETINAL DETACHMENT [None]
  - VISION BLURRED [None]
